FAERS Safety Report 8530190 (Version 4)
Quarter: 2015Q4

REPORT INFORMATION
  Report Type: Spontaneous
  Country: US (occurrence: US)
  Receive Date: 20120425
  Receipt Date: 20151123
  Transmission Date: 20160305
  Serious: Yes (Hospitalization)
  Sender: FDA-Public Use
  Company Number: US-BAYER-2012-039479

PATIENT
  Age: 43 Year
  Sex: Female
  Weight: 67.98 kg

DRUGS (4)
  1. OCELLA [Suspect]
     Active Substance: DROSPIRENONE\ETHINYL ESTRADIOL
     Dosage: UNK
     Dates: start: 200807, end: 201107
  2. YASMIN [Suspect]
     Active Substance: DROSPIRENONE\ETHINYL ESTRADIOL
     Indication: CONTRACEPTION
     Dosage: UNK
  3. OCELLA [Suspect]
     Active Substance: DROSPIRENONE\ETHINYL ESTRADIOL
     Dosage: UNK
  4. YASMIN [Suspect]
     Active Substance: DROSPIRENONE\ETHINYL ESTRADIOL
     Indication: CONTRACEPTION
     Dosage: UNK
     Dates: start: 200703, end: 200806

REACTIONS (6)
  - Pain [None]
  - Cerebrovascular accident [None]
  - Emotional distress [None]
  - Injury [None]
  - General physical health deterioration [None]
  - Anxiety [None]

NARRATIVE: CASE EVENT DATE: 20110720
